FAERS Safety Report 22238583 (Version 1)
Quarter: 2023Q2

REPORT INFORMATION
  Report Type: Other
  Country: FR (occurrence: FR)
  Receive Date: 20230421
  Receipt Date: 20230421
  Transmission Date: 20230722
  Serious: Yes (Death, Other)
  Sender: FDA-Public Use
  Company Number: FR-STRIDES ARCOLAB LIMITED-2023SP005454

PATIENT
  Age: 4 Year
  Sex: Female
  Weight: 17 kg

DRUGS (1)
  1. IBUPROFEN [Suspect]
     Active Substance: IBUPROFEN
     Indication: Influenza like illness
     Dosage: NON PR?CIS?
     Route: 048
     Dates: start: 20230227

REACTIONS (4)
  - Streptococcal endocarditis [Fatal]
  - Pericarditis infective [Fatal]
  - Streptococcal infection [Fatal]
  - Off label use [Unknown]

NARRATIVE: CASE EVENT DATE: 20230301
